FAERS Safety Report 25125422 (Version 2)
Quarter: 2025Q2

REPORT INFORMATION
  Report Type: Spontaneous
  Country: FR (occurrence: FR)
  Receive Date: 20250326
  Receipt Date: 20250521
  Transmission Date: 20250717
  Serious: Yes (Other)
  Sender: VERTEX
  Company Number: None

PATIENT
  Age: 32 Year
  Sex: Male
  Weight: 142 kg

DRUGS (17)
  1. ELEXACAFTOR\IVACAFTOR\TEZACAFTOR [Suspect]
     Active Substance: ELEXACAFTOR\IVACAFTOR\TEZACAFTOR
     Indication: Cystic fibrosis
     Route: 048
     Dates: start: 20240711
  2. ELEXACAFTOR\IVACAFTOR\TEZACAFTOR [Suspect]
     Active Substance: ELEXACAFTOR\IVACAFTOR\TEZACAFTOR
     Dosage: 2 TABS (75 MG IVA/50 MG TEZA/100 MG ELEXA) PER DAY
     Route: 048
     Dates: start: 20240719, end: 20240824
  3. ELEXACAFTOR\IVACAFTOR\TEZACAFTOR [Suspect]
     Active Substance: ELEXACAFTOR\IVACAFTOR\TEZACAFTOR
     Route: 048
     Dates: start: 20240825, end: 20240901
  4. ELEXACAFTOR\IVACAFTOR\TEZACAFTOR [Suspect]
     Active Substance: ELEXACAFTOR\IVACAFTOR\TEZACAFTOR
     Dosage: UNKNOWN
     Route: 048
     Dates: start: 20240902, end: 20250305
  5. ELEXACAFTOR\IVACAFTOR\TEZACAFTOR [Suspect]
     Active Substance: ELEXACAFTOR\IVACAFTOR\TEZACAFTOR
     Route: 048
     Dates: start: 20250306
  6. KALYDECO [Suspect]
     Active Substance: IVACAFTOR
     Indication: Cystic fibrosis
     Route: 048
     Dates: start: 20240711
  7. KALYDECO [Suspect]
     Active Substance: IVACAFTOR
     Dosage: 1 TAB PER DAY
     Route: 048
     Dates: start: 20240719, end: 20240824
  8. KALYDECO [Suspect]
     Active Substance: IVACAFTOR
     Dosage: 1 TAB PER DAY
     Route: 048
     Dates: start: 20241017, end: 20250305
  9. KALYDECO [Suspect]
     Active Substance: IVACAFTOR
     Route: 048
     Dates: start: 20250306
  10. ALBUTEROL [Concomitant]
     Active Substance: ALBUTEROL
  11. PULMOZYME [Concomitant]
     Active Substance: DORNASE ALFA
  12. NEXIUM [Concomitant]
     Active Substance: ESOMEPRAZOLE MAGNESIUM
     Dosage: 40MG, 1/DAY
     Dates: start: 20240708
  13. DEPAKENE [Concomitant]
     Active Substance: VALPROIC ACID
     Dosage: 2 AM, 2 PM
  14. OLANZAPINE [Concomitant]
     Active Substance: OLANZAPINE
     Dosage: 1 IN THE EVENING
  15. BECLOMETHASONE DIPROPIONATE\FORMOTEROL FUMARATE\GLYCOPYRROLATE [Concomitant]
     Active Substance: BECLOMETHASONE DIPROPIONATE\FORMOTEROL FUMARATE\GLYCOPYRROLATE
     Dosage: 2 PUFFS IN MORNING AND EVENING
  16. MONTELUKAST [Concomitant]
     Active Substance: MONTELUKAST
     Dosage: 1/DAY, QD
  17. LEVOTHYROXINE [Concomitant]
     Active Substance: LEVOTHYROXINE
     Dosage: 1/DAY, QD

REACTIONS (1)
  - Gout [Recovering/Resolving]

NARRATIVE: CASE EVENT DATE: 20240824
